FAERS Safety Report 5679400-8 (Version None)
Quarter: 2008Q1

REPORT INFORMATION
  Report Type: 
  Country: None (occurrence: None)
  Receive Date: 20080325
  Receipt Date: 20080313
  Transmission Date: 20080703
  Serious: Yes (Other)
  Sender: FDA-Public Use
  Company Number: AT-PFIZER INC-2008010369

PATIENT
  Age: 71 Year
  Sex: Female
  Weight: 48 kg

DRUGS (11)
  1. SERTRALINE [Suspect]
     Route: 048
  2. ARICEPT [Suspect]
     Indication: DEMENTIA ALZHEIMER'S TYPE
     Route: 048
  3. HALDOL [Suspect]
     Dosage: DAILY DOSE:1.5MG
     Route: 048
  4. SEROQUEL [Suspect]
     Dosage: DAILY DOSE:200MG-TEXT:DAILY
     Route: 048
  5. MIRTAZAPINE [Concomitant]
     Route: 048
     Dates: start: 20070701, end: 20071212
  6. XANOR [Concomitant]
     Route: 048
     Dates: start: 20071122
  7. NEXIUM [Concomitant]
     Route: 048
     Dates: start: 20070701
  8. LACTULOSE [Concomitant]
     Route: 048
  9. GASTROZEPIN [Concomitant]
     Route: 048
     Dates: start: 20070701, end: 20071223
  10. TPN [Concomitant]
     Route: 048
     Dates: start: 20071211, end: 20071231
  11. GENTAMICIN [Concomitant]
     Route: 061
     Dates: start: 20071218, end: 20071231

REACTIONS (1)
  - PLEUROTHOTONUS [None]
